FAERS Safety Report 8544342-7 (Version None)
Quarter: 2012Q2

REPORT INFORMATION
  Report Type: 
  Country: None (occurrence: None)
  Receive Date: 20120416
  Receipt Date: 20100419
  Transmission Date: 20120825
  Serious: Yes (Other)
  Sender: FDA-Public Use
  Company Number: PHHY2010US24952

PATIENT
  Age: 74 Year
  Sex: Female

DRUGS (5)
  1. ZOLOFT [Concomitant]
  2. LOPRESSOR [Concomitant]
  3. DIOVAN [Suspect]
     Dosage: 160 MG,(ONE HALF A DAY ON FRIDAY AND SATURDAY LAST WEEK)
  4. WARFARIN SODIUM [Concomitant]
  5. TRAZODONE HCL [Concomitant]

REACTIONS (5)
  - DIARRHOEA [None]
  - DIZZINESS [None]
  - NAUSEA [None]
  - BLOOD PRESSURE DIASTOLIC DECREASED [None]
  - BACK PAIN [None]
